FAERS Safety Report 7618106-2 (Version None)
Quarter: 2011Q3

REPORT INFORMATION
  Report Type: 
  Country: None (occurrence: None)
  Receive Date: 20110718
  Receipt Date: 20110704
  Transmission Date: 20111222
  Serious: Yes (Life-Threatening)
  Sender: FDA-Public Use
  Company Number: PE-UCBSA-033087

PATIENT
  Sex: Male
  Weight: 85 kg

DRUGS (9)
  1. SELEGILINE [Concomitant]
     Indication: PARKINSON'S DISEASE
     Dates: start: 20100301
  2. SULFATO FERROSO [Concomitant]
     Indication: ANAEMIA
     Dates: start: 20110318
  3. ZOPICLONA [Concomitant]
     Indication: INSOMNIA
     Dates: start: 20110228
  4. ROTIGOTINE [Suspect]
     Indication: PARKINSON'S DISEASE
     Dosage: 2MG/24HOURS
     Route: 062
     Dates: start: 20110207, end: 20110518
  5. DIMENHYDRINATE [Concomitant]
     Indication: DIZZINESS
     Dosage: FREQUENCY REPORTED AS BIW
     Dates: start: 20081001
  6. OMEPRAZOLE [Concomitant]
     Indication: GASTRIC ULCER
     Dates: start: 20101001
  7. CLOTRIMAZOL [Concomitant]
     Indication: FUNGAL SKIN INFECTION
     Dosage: 1% APP
     Dates: start: 20110220
  8. SULCONAR [Concomitant]
     Indication: PARKINSON'S DISEASE
     Dosage: 250/25, SINGLE DOSE:6.5
     Dates: start: 20100301
  9. BIPERIDENO [Concomitant]
     Indication: PARKINSON'S DISEASE
     Dates: start: 20100301

REACTIONS (1)
  - BUNDLE BRANCH BLOCK LEFT [None]
